FAERS Safety Report 16280273 (Version 1)
Quarter: 2019Q2

REPORT INFORMATION
  Report Type: Spontaneous
  Country: BR (occurrence: BR)
  Receive Date: 20190507
  Receipt Date: 20190507
  Transmission Date: 20190711
  Serious: Yes (Hospitalization, Other)
  Sender: FDA-Public Use
  Company Number: BR-GLAXOSMITHKLINE-BR2019GSK077576

PATIENT
  Age: 45 Year
  Sex: Female

DRUGS (1)
  1. NUCALA [Suspect]
     Active Substance: MEPOLIZUMAB
     Indication: ASTHMA
     Dosage: 100 MG, UNK
     Dates: start: 20190108

REACTIONS (5)
  - Abdominal distension [Unknown]
  - Gastrointestinal carcinoma [Unknown]
  - Metastasis [Unknown]
  - Abdominal pain [Unknown]
  - Bladder cancer [Unknown]

NARRATIVE: CASE EVENT DATE: 201901
